FAERS Safety Report 6161411-X (Version None)
Quarter: 2009Q2

REPORT INFORMATION
  Report Type: 
  Country: None (occurrence: None)
  Receive Date: 20090417
  Receipt Date: 20090401
  Transmission Date: 20091009
  Serious: Yes (Hospitalization)
  Sender: FDA-Public Use
  Company Number: 8044492

PATIENT
  Age: 16 Year
  Sex: Male
  Weight: 47.7 kg

DRUGS (3)
  1. KEPPRA [Suspect]
     Indication: CONVULSION
     Dosage: MG/D PO
     Route: 048
     Dates: start: 20090101
  2. KEPPRA [Suspect]
     Dosage: 500 MG 2/D PO
     Route: 048
     Dates: start: 20090301
  3. LAMICTAL [Concomitant]

REACTIONS (3)
  - CONVULSION [None]
  - ELECTROENCEPHALOGRAM ABNORMAL [None]
  - THERAPEUTIC RESPONSE UNEXPECTED WITH DRUG SUBSTITUTION [None]
